FAERS Safety Report 7423514-9 (Version None)
Quarter: 2011Q2

REPORT INFORMATION
  Report Type: 
  Country: None (occurrence: None)
  Receive Date: 20110419
  Receipt Date: 20110407
  Transmission Date: 20111010
  Serious: Yes (Other)
  Sender: FDA-Public Use
  Company Number: PHFR2010GB04687

PATIENT
  Sex: Female
  Weight: 74.4 kg

DRUGS (5)
  1. VALPROATE SODIUM [Concomitant]
     Dosage: UNK
     Route: 048
  2. CLOZARIL [Suspect]
     Indication: SCHIZOPHRENIA
     Dosage: UNK
     Route: 048
     Dates: start: 20100510
  3. LACTULOSE [Concomitant]
     Indication: CONSTIPATION
     Dosage: UNK
     Route: 048
     Dates: start: 20101011
  4. CLOZARIL [Suspect]
     Dosage: UNK
     Dates: start: 20100621
  5. PIRENZEPINE [Concomitant]
     Indication: SALIVARY HYPERSECRETION
     Dosage: UNK
     Route: 048
     Dates: start: 20100928

REACTIONS (8)
  - ABDOMINAL PAIN [None]
  - VOMITING [None]
  - EAR INFECTION [None]
  - INFLUENZA LIKE ILLNESS [None]
  - HELMINTHIC INFECTION [None]
  - BODY TEMPERATURE INCREASED [None]
  - BLOOD AMYLASE INCREASED [None]
  - PYREXIA [None]
